FAERS Safety Report 21638143 (Version 5)
Quarter: 2023Q1

REPORT INFORMATION
  Report Type: Report from Study
  Country: PT (occurrence: PT)
  Receive Date: 20221124
  Receipt Date: 20230302
  Transmission Date: 20230417
  Serious: Yes (Hospitalization, Other)
  Sender: FDA-Public Use
  Company Number: PT-ABBVIE-4211627

PATIENT
  Age: 74 Year
  Sex: Male

DRUGS (9)
  1. HUMIRA [Suspect]
     Active Substance: ADALIMUMAB
     Indication: Rheumatoid arthritis
     Dosage: FORM STRENGTH: 40 MG
     Route: 058
     Dates: start: 20211030, end: 20220904
  2. OMEPRAZOLE [Concomitant]
     Active Substance: OMEPRAZOLE
     Indication: Product used for unknown indication
     Dosage: FREQUENCY TEXT: AT BREAKFAST PRODUCT
  3. Rantudil (acemetacin) [Concomitant]
     Indication: Product used for unknown indication
     Dosage: FORM STRENGTH: 60 MG?FREQUENCY TEXT: AT BREAKFAST AND AT DINNER PRODUCT
  4. Permixon (Serenoa repens) [Concomitant]
     Indication: Product used for unknown indication
     Dosage: FORM STRENGTH: 160 PRODUCT ?FREQUENCY TEXT: AT BREAKFAST AND AT DINNER PRODUCT
  5. LEFLUNOMIDE [Concomitant]
     Active Substance: LEFLUNOMIDE
     Indication: Product used for unknown indication
     Dosage: FORM STRENGTH: 20 MG?FREQUENCY TEXT: AT LUNCH
     Dates: end: 2022
  6. Lepicortinolo (prednisolone) [Concomitant]
     Indication: Rheumatoid arthritis
     Dates: start: 2020, end: 202209
  7. Lepicortinolo (prednisolone) [Concomitant]
     Indication: Rheumatoid arthritis
     Dosage: FORM STRENGTH: 5 MG?TEXT: AT BREAKFAST AND AT DINNER
     Dates: start: 20221009
  8. SIMVASTATIN [Concomitant]
     Active Substance: SIMVASTATIN
     Indication: Product used for unknown indication
     Dosage: FORM STRENGTH: 20 MG?FREQUENCY TEXT: AT DINNER
  9. Folicil (folic acid) [Concomitant]
     Indication: Product used for unknown indication
     Dosage: STRENGTH: 5MG?FREQUENCY TEXT: IN THE MORNING
     Dates: start: 20221009

REACTIONS (5)
  - Tendon rupture [Not Recovered/Not Resolved]
  - Cough [Unknown]
  - Tissue injury [Unknown]
  - Arthralgia [Recovering/Resolving]
  - Localised infection [Recovered/Resolved]

NARRATIVE: CASE EVENT DATE: 20220101
